FAERS Safety Report 4762783-0 (Version None)
Quarter: 2005Q3

REPORT INFORMATION
  Report Type: 
  Country: None (occurrence: None)
  Receive Date: 20050907
  Receipt Date: 20050826
  Transmission Date: 20060218
  Serious: Yes (Hospitalization)
  Sender: FDA-Public Use
  Company Number: US-JNJFOC-20050806890

PATIENT
  Sex: Female

DRUGS (10)
  1. DURAGESIC-100 [Suspect]
     Route: 062
  2. DURAGESIC-100 [Suspect]
     Route: 062
  3. GLUCOPHAGE [Concomitant]
     Route: 048
  4. GLUCOPHAGE [Concomitant]
     Route: 048
  5. AVANDIA [Concomitant]
     Route: 048
  6. AVANDIA [Concomitant]
     Route: 048
  7. NOVOLOG [Concomitant]
     Dosage: 25 UNITS, 3 IN 24 HOURS, BEFORE MEALS
     Route: 050
  8. NOVOLOG [Concomitant]
     Route: 050
  9. LANTUS [Concomitant]
     Dosage: 75 UNITS, 1 IN 24 HOURS
     Route: 050
  10. LANTUS [Concomitant]
     Dosage: 75 UNITS, 1 IN 24 HOURS
     Route: 050

REACTIONS (4)
  - APPLICATION SITE DERMATITIS [None]
  - APPLICATION SITE ERYTHEMA [None]
  - DIABETES MELLITUS [None]
  - PAIN [None]
